FAERS Safety Report 9640340 (Version 2)
Quarter: 2014Q1

REPORT INFORMATION
  Report Type: Spontaneous
  Country: US (occurrence: None)
  Receive Date: 20131021
  Receipt Date: 20140206
  Transmission Date: 20141002
  Serious: Yes (Hospitalization, Other)
  Sender: FDA-Public Use
  Company Number: 1955380

PATIENT
  Age: 21 Year
  Sex: Female
  Weight: 45 kg

DRUGS (6)
  1. VINCRISTINE SULPHATE INJECTION (VINCRISTINE SULFATE) [Suspect]
     Indication: ANAPLASTIC LARGE CELL LYMPHOMA T- AND NULL-CELL TYPES
  2. (CRIZOTINIB) [Suspect]
     Indication: ANAPLASTIC LARGE CELL LYMPHOMA T- AND NULL-CELL TYPES
     Dosage: 280 MG/M2 MILLIGRAM(S)/SQ.METER
     Dates: start: 20120831, end: 20130728
  3. METHOTREXATE SODIUM [Suspect]
     Indication: ANAPLASTIC LARGE CELL LYMPHOMA T- AND NULL-CELL TYPES
  4. TRIMETHOPRIM SULFAMETHOXAZOLE [Suspect]
     Indication: ANAPLASTIC LARGE CELL LYMPHOMA T- AND NULL-CELL TYPES
  5. HYOSCINE [Concomitant]
  6. DRONABINOL [Concomitant]

REACTIONS (3)
  - Erythema nodosum [None]
  - Lymph gland infection [None]
  - Histoplasmosis [None]
